FAERS Safety Report 11734028 (Version 1)
Quarter: 2015Q4

REPORT INFORMATION
  Report Type: Spontaneous
  Country: US (occurrence: None)
  Receive Date: 20151112
  Receipt Date: 20151112
  Transmission Date: 20160304
  Serious: Yes (Hospitalization)
  Sender: FDA-Public Use
  Company Number: None

PATIENT
  Age: 67 Year
  Sex: Male
  Weight: 152.8 kg

DRUGS (1)
  1. IOHEXOL [Suspect]
     Active Substance: IOHEXOL
     Indication: COMPUTERISED TOMOGRAM ABDOMEN
     Route: 042
     Dates: start: 20151008, end: 20151008

REACTIONS (2)
  - Dyspnoea [None]
  - Tachypnoea [None]

NARRATIVE: CASE EVENT DATE: 20151008
